FAERS Safety Report 8329100-0 (Version None)
Quarter: 2012Q2

REPORT INFORMATION
  Report Type: 
  Country: None (occurrence: None)
  Receive Date: 20120502
  Receipt Date: 20120425
  Transmission Date: 20120825
  Serious: Yes (Other)
  Sender: FDA-Public Use
  Company Number: JP-PFIZER INC-2009161123

PATIENT
  Age: 56 Year
  Sex: Male

DRUGS (9)
  1. AMPHOTERICINE B, LIPOSOME [Concomitant]
     Indication: STAPHYLOCOCCAL INFECTION
  2. TACROLIMUS [Concomitant]
  3. IMIPENEM AND CILASTATIN SODIUM [Concomitant]
     Indication: STAPHYLOCOCCAL INFECTION
  4. URSODIOL [Concomitant]
  5. FLUCONAZOLE [Concomitant]
  6. VANCOMYCIN [Concomitant]
     Indication: STAPHYLOCOCCAL INFECTION
     Route: 065
  7. FAMOTIDINE [Concomitant]
  8. ZYVOX [Suspect]
     Indication: STAPHYLOCOCCAL INFECTION
     Dosage: 600 MG, 2X/DAY
     Route: 041
  9. ACYCLOVIR [Concomitant]

REACTIONS (1)
  - APLASIA PURE RED CELL [None]
